FAERS Safety Report 16387755 (Version 2)
Quarter: 2019Q2

REPORT INFORMATION
  Report Type: Spontaneous
  Country: NL (occurrence: NL)
  Receive Date: 20190604
  Receipt Date: 20190624
  Transmission Date: 20190711
  Serious: Yes (Hospitalization)
  Sender: FDA-Public Use
  Company Number: NL-TEVA-2019-NL-1059112

PATIENT
  Age: 73 Year
  Sex: Male
  Weight: 96 kg

DRUGS (2)
  1. DIAZEPAM. [Suspect]
     Active Substance: DIAZEPAM
     Indication: ALCOHOL PROBLEM
     Dosage: 40 MILLIGRAM DAILY; 4 TIMES DAILY 1 DIAZEPAM
     Route: 065
  2. XANAX [Suspect]
     Active Substance: ALPRAZOLAM
     Indication: ALCOHOL PROBLEM
     Dosage: 1 CAPSULE PER DAY
     Route: 065

REACTIONS (12)
  - Irritability [Recovering/Resolving]
  - Rehabilitation therapy [Recovering/Resolving]
  - Loss of personal independence in daily activities [Recovering/Resolving]
  - General physical health deterioration [Recovering/Resolving]
  - Somnolence [Recovering/Resolving]
  - Suspiciousness [Recovering/Resolving]
  - Personality disorder [Recovering/Resolving]
  - Mood altered [Recovering/Resolving]
  - Therapy non-responder [Recovering/Resolving]
  - Treatment failure [Recovering/Resolving]
  - Anger [Recovering/Resolving]
  - Poor quality sleep [Recovering/Resolving]

NARRATIVE: CASE EVENT DATE: 201806
